FAERS Safety Report 9898942 (Version 1)
Quarter: 2014Q1

REPORT INFORMATION
  Report Type: Spontaneous
  Country: IT (occurrence: IT)
  Receive Date: 20140214
  Receipt Date: 20140214
  Transmission Date: 20141002
  Serious: Yes (Hospitalization, Other)
  Sender: FDA-Public Use
  Company Number: IT-ELI_LILLY_AND_COMPANY-IT201402002194

PATIENT
  Age: 85 Year
  Sex: Male

DRUGS (7)
  1. HUMALOG LISPRO [Suspect]
     Indication: DIABETES MELLITUS
     Dosage: 17 DF, QD
     Route: 058
     Dates: start: 20140115
  2. HUMALOG 50% LISPRO, 50% NPL [Suspect]
     Indication: DIABETES MELLITUS
     Dosage: 14 DF, QD
     Route: 058
     Dates: start: 20140115
  3. TEMODAL [Concomitant]
     Indication: GLIOBLASTOMA
  4. SOLDESAM [Concomitant]
     Dosage: 96 DF, UNK
     Route: 048
  5. EUTIROX [Concomitant]
  6. ENAPREN [Concomitant]
  7. TENORMIN [Concomitant]
     Dosage: 50 MG, UNK
     Route: 048

REACTIONS (2)
  - Epilepsy [Recovering/Resolving]
  - Hypoglycaemia [Recovering/Resolving]
